FAERS Safety Report 5334592-5 (Version None)
Quarter: 2007Q2

REPORT INFORMATION
  Report Type: 
  Country: None (occurrence: None)
  Receive Date: 20070525
  Receipt Date: 20070515
  Transmission Date: 20071010
  Serious: Yes (Hospitalization)
  Sender: FDA-Public Use
  Company Number: FR-JNJFOC-20070406020

PATIENT
  Sex: Male
  Weight: 57 kg

DRUGS (4)
  1. TMC125 [Suspect]
     Indication: HIV INFECTION
     Route: 048
  2. PREZISTA [Suspect]
     Indication: HIV INFECTION
     Route: 048
  3. FUZEON [Suspect]
     Indication: HIV INFECTION
     Route: 058
  4. NORVIR [Suspect]
     Indication: HIV INFECTION
     Route: 048

REACTIONS (7)
  - CONJUNCTIVITIS [None]
  - HYPERSENSITIVITY [None]
  - INJECTION SITE NODULE [None]
  - PHARYNGITIS [None]
  - PRURITUS [None]
  - PYREXIA [None]
  - RASH MACULO-PAPULAR [None]
